FAERS Safety Report 5632325-6 (Version None)
Quarter: 2008Q1

REPORT INFORMATION
  Report Type: 
  Country: None (occurrence: None)
  Receive Date: 20080220
  Receipt Date: 20080211
  Transmission Date: 20080703
  Serious: Yes (Death)
  Sender: FDA-Public Use
  Company Number: US-KINGPHARMUSA00001-K200800145

PATIENT

DRUGS (3)
  1. EPIPEN [Suspect]
     Indication: ANAPHYLACTIC REACTION
     Dosage: 165 MCG, SINGLE
     Route: 030
     Dates: start: 20080123, end: 20080123
  2. BENTELAN [Suspect]
     Dates: start: 20080123, end: 20080123
  3. TRIMETON                           /00072502/ [Suspect]
     Dates: start: 20080123, end: 20080123

REACTIONS (2)
  - DRUG INEFFECTIVE [None]
  - UNDERDOSE [None]
